FAERS Safety Report 14566787 (Version 2)
Quarter: 2018Q1

REPORT INFORMATION
  Report Type: Spontaneous
  Country: BR (occurrence: BR)
  Receive Date: 20180223
  Receipt Date: 20180322
  Transmission Date: 20180509
  Serious: Yes (Other)
  Sender: FDA-Public Use
  Company Number: PHHY2018BR029272

PATIENT
  Sex: Female
  Weight: 40 kg

DRUGS (1)
  1. TEGRETOL [Suspect]
     Active Substance: CARBAMAZEPINE
     Indication: SEIZURE
     Dosage: 32.5 ML, QD (12.5 ML MORNING,10 ML NOON AND 10 ML NIGHT)
     Route: 048

REACTIONS (1)
  - Seizure [Unknown]
